FAERS Safety Report 16939115 (Version 1)
Quarter: 2019Q4

REPORT INFORMATION
  Report Type: Spontaneous
  Country: CN (occurrence: CN)
  Receive Date: 20191020
  Receipt Date: 20191020
  Transmission Date: 20200122
  Serious: Yes (Hospitalization, Disabling)
  Sender: FDA-Public Use
  Company Number: CN-BAXTER-2019BAX020546

PATIENT
  Age: 7 Year
  Sex: Male
  Weight: 20 kg

DRUGS (8)
  1. STERILE WATER [Suspect]
     Active Substance: WATER
     Dosage: CYTARABINE FOR INJECTION + STERILE WATER FOR INJECTION, DOSE RE-INTRODUCED
     Route: 058
  2. 5% GLUCOSE  INJECTION [Suspect]
     Active Substance: DEXTROSE
     Dosage: ENDOXAN + 5% GS, DOSE RE-INTRODUCED
     Route: 041
  3. CYTARABINE HYDROCHLORIDE [Suspect]
     Active Substance: CYTARABINE HYDROCHLORIDE
     Indication: ACUTE LYMPHOCYTIC LEUKAEMIA RECURRENT
     Dosage: CYTARABINE FOR INJECTION + STERILE WATER FOR INJECTION 1ML
     Route: 058
     Dates: start: 20190907, end: 20190910
  4. ENDOXAN [Suspect]
     Active Substance: CYCLOPHOSPHAMIDE
     Indication: ACUTE LYMPHOCYTIC LEUKAEMIA RECURRENT
     Dosage: ENDOXAN + 5% GS 100ML
     Route: 041
     Dates: start: 20190906, end: 20190906
  5. CYTARABINE HYDROCHLORIDE [Suspect]
     Active Substance: CYTARABINE HYDROCHLORIDE
     Dosage: CYTARABINE FOR INJECTION + STERILE WATER FOR INJECTION, DOSE RE-INTRODUCED
     Route: 058
  6. STERILE WATER [Suspect]
     Active Substance: WATER
     Indication: MEDICATION DILUTION
     Dosage: CYTARABINE FOR INJECTION 40 MG + STERILE WATER FOR INJECTION
     Route: 058
     Dates: start: 20190907, end: 20190910
  7. ENDOXAN [Suspect]
     Active Substance: CYCLOPHOSPHAMIDE
     Dosage: ENDOXAN + 5% GS, DOSE RE-INTRODUCED
     Route: 041
  8. 5% GLUCOSE  INJECTION [Suspect]
     Active Substance: DEXTROSE
     Indication: MEDICATION DILUTION
     Dosage: ENDOXAN + 5% GS
     Route: 041
     Dates: start: 20190906, end: 20190906

REACTIONS (1)
  - Bone marrow failure [Recovering/Resolving]

NARRATIVE: CASE EVENT DATE: 20190921
